FAERS Safety Report 8238876-2 (Version None)
Quarter: 2012Q1

REPORT INFORMATION
  Report Type: 
  Country: None (occurrence: None)
  Receive Date: 20120327
  Receipt Date: 20120320
  Transmission Date: 20120608
  Serious: Yes (Other)
  Sender: FDA-Public Use
  Company Number: US-BAYER-2012-028184

PATIENT

DRUGS (2)
  1. IBUPROFEN (ADVIL) [Concomitant]
  2. ALEVE (CAPLET) [Suspect]
     Indication: BACK PAIN

REACTIONS (8)
  - BACK PAIN [None]
  - MOBILITY DECREASED [None]
  - ARTHRALGIA [None]
  - ACTIVITIES OF DAILY LIVING IMPAIRED [None]
  - DRUG DEPENDENCE [None]
  - PAIN IN EXTREMITY [None]
  - SCIATICA [None]
  - GAIT DISTURBANCE [None]
